FAERS Safety Report 9397292 (Version 1)
Quarter: 2013Q3

REPORT INFORMATION
  Report Type: Spontaneous
  Country: US (occurrence: None)
  Receive Date: 20130711
  Receipt Date: 20130711
  Transmission Date: 20140515
  Serious: Yes (Death)
  Sender: FDA-Public Use
  Company Number: None

PATIENT
  Age: 75 Year
  Sex: Male

DRUGS (1)
  1. EXJADE 500MG NOVARTIS [Suspect]
     Route: 048
     Dates: start: 20120712, end: 20130531

REACTIONS (3)
  - Cardiac failure congestive [None]
  - Myocardial infarction [None]
  - Red blood cell count decreased [None]
